FAERS Safety Report 8895567 (Version 1)
Quarter: 2012Q4

REPORT INFORMATION
  Report Type: 
  Country: US (occurrence: US)
  Receive Date: 20121108
  Receipt Date: 20121108
  Transmission Date: 20130627
  Serious: Yes (Other)
  Sender: FDA-Public Use
  Company Number: US-PFIZER INC-2012278549

PATIENT
  Age: 49 Year
  Sex: Male
  Weight: 76.64 kg

DRUGS (2)
  1. ALDACTONE [Suspect]
     Indication: DIURETIC THERAPY
     Dosage: 25 mg, daily
     Dates: start: 2011
  2. FUROSEMIDE [Concomitant]
     Indication: DIURETIC THERAPY
     Dosage: 40 mg, 2x/day

REACTIONS (1)
  - Weight increased [Recovered/Resolved]
